FAERS Safety Report 23280932 (Version 2)
Quarter: 2024Q1

REPORT INFORMATION
  Report Type: Spontaneous
  Country: US (occurrence: US)
  Receive Date: 20231211
  Receipt Date: 20240320
  Transmission Date: 20240410
  Serious: No
  Sender: FDA-Public Use
  Company Number: US-NOVEN PHARMACEUTICALS, INC.-2023-NOV-US000486

PATIENT
  Age: 63 Year
  Sex: Female
  Weight: 72.998 kg

DRUGS (3)
  1. ESTRADIOL [Suspect]
     Active Substance: ESTRADIOL
     Indication: Weight gain poor
     Dosage: 0.0375 MG, EVERY 3-4 DAYS
     Route: 062
     Dates: start: 20230511
  2. ESTRADIOL [Suspect]
     Active Substance: ESTRADIOL
     Indication: Affective disorder
  3. ESTRADIOL [Suspect]
     Active Substance: ESTRADIOL
     Indication: Off label use

REACTIONS (6)
  - Product administered at inappropriate site [Not Recovered/Not Resolved]
  - Product storage error [Not Recovered/Not Resolved]
  - Intentional dose omission [Recovered/Resolved]
  - Device issue [Recovered/Resolved]
  - Off label use [Not Recovered/Not Resolved]
  - No adverse event [Unknown]

NARRATIVE: CASE EVENT DATE: 20230511
